FAERS Safety Report 7221658-8 (Version None)
Quarter: 2011Q1

REPORT INFORMATION
  Report Type: 
  Country: None (occurrence: None)
  Receive Date: 20110112
  Receipt Date: 20110107
  Transmission Date: 20110831
  Serious: Yes (Hospitalization, Other)
  Sender: FDA-Public Use
  Company Number: FR-ROCHE-748569

PATIENT
  Sex: Female
  Weight: 52 kg

DRUGS (4)
  1. AVASTIN [Suspect]
     Indication: COLON CANCER METASTATIC
     Route: 042
     Dates: start: 20100905, end: 20101208
  2. 5-FU [Concomitant]
     Indication: COLON CANCER METASTATIC
     Dates: start: 20100901
  3. OXALIPLATIN [Concomitant]
     Indication: COLON CANCER METASTATIC
     Dates: start: 20100901
  4. LEUCOVORIN CALCIUM [Concomitant]
     Indication: COLON CANCER METASTATIC
     Dates: start: 20100901

REACTIONS (2)
  - CYTOLYTIC HEPATITIS [None]
  - INTRAVENTRICULAR HAEMORRHAGE [None]
